FAERS Safety Report 4377413-X (Version None)
Quarter: 2004Q2

REPORT INFORMATION
  Report Type: 
  Country: None (occurrence: None)
  Receive Date: 20040609
  Receipt Date: 20040421
  Transmission Date: 20050107
  Serious: No
  Sender: FDA-Public Use
  Company Number: 2004210912US

PATIENT
  Age: 70 Year
  Sex: Female

DRUGS (3)
  1. BEXTRA [Suspect]
     Dosage: 20 MG, QD, UNK
  2. GLUCOSAMINE [Concomitant]
  3. ZITHROMAX [Concomitant]

REACTIONS (2)
  - HYPOTRICHOSIS [None]
  - UPPER RESPIRATORY TRACT INFECTION [None]
